FAERS Safety Report 8405921-0 (Version None)
Quarter: 2012Q2

REPORT INFORMATION
  Report Type: 
  Country: None (occurrence: None)
  Receive Date: 20120604
  Receipt Date: 20120530
  Transmission Date: 20120825
  Serious: No
  Sender: FDA-Public Use
  Company Number: US-JNJFOC-20120520964

PATIENT
  Sex: Female
  Weight: 106.14 kg

DRUGS (12)
  1. NEXIUM [Concomitant]
     Indication: GASTROOESOPHAGEAL REFLUX DISEASE
     Route: 048
  2. ROBAXIN [Concomitant]
     Indication: MUSCLE SPASMS
     Route: 048
  3. CELEBREX [Concomitant]
     Indication: ARTHRITIS
     Route: 048
  4. SINGULAIR [Concomitant]
     Indication: MULTIPLE ALLERGIES
     Route: 048
     Dates: start: 20000101
  5. CYMBALTA [Concomitant]
     Indication: DEPRESSION
     Route: 048
  6. DURAGESIC-100 [Suspect]
     Route: 062
     Dates: start: 20120401
  7. PROCARDIA [Concomitant]
     Indication: BLOOD PRESSURE
     Route: 048
     Dates: start: 20110101
  8. ALPRAZOLAM [Concomitant]
     Indication: ANXIETY
     Route: 048
     Dates: start: 20080101
  9. SINGULAIR [Concomitant]
     Indication: ASTHMA
     Route: 048
     Dates: start: 20000101
  10. DURAGESIC-100 [Suspect]
     Indication: PAIN
     Route: 062
     Dates: start: 20120401
  11. LYRICA [Concomitant]
     Indication: COMPLEX REGIONAL PAIN SYNDROME
     Route: 048
     Dates: start: 20080101
  12. LORTAB [Concomitant]
     Indication: BREAKTHROUGH PAIN
     Route: 048

REACTIONS (5)
  - PRODUCT ADHESION ISSUE [None]
  - APPLICATION SITE VESICLES [None]
  - PRODUCT QUALITY ISSUE [None]
  - DERMATITIS CONTACT [None]
  - WRONG TECHNIQUE IN DRUG USAGE PROCESS [None]
